FAERS Safety Report 20663150 (Version 2)
Quarter: 2022Q3

REPORT INFORMATION
  Report Type: Spontaneous
  Country: FR (occurrence: FR)
  Receive Date: 20220401
  Receipt Date: 20220726
  Transmission Date: 20221027
  Serious: Yes (Life-Threatening, Other)
  Sender: FDA-Public Use
  Company Number: None

PATIENT
  Age: 32 Year
  Sex: Female
  Weight: 98 kg

DRUGS (8)
  1. QUETIAPINE [Suspect]
     Active Substance: QUETIAPINE
     Dates: start: 20220206
  2. DIAZEPAM [Suspect]
     Active Substance: DIAZEPAM
     Dates: start: 20220206
  3. CYAMEMAZINE [Suspect]
     Active Substance: CYAMEMAZINE
     Dosage: 1 VIAL
     Dates: start: 20220206
  4. MIANSERIN HYDROCHLORIDE [Suspect]
     Active Substance: MIANSERIN HYDROCHLORIDE
     Dates: start: 20220206
  5. FLUOXETINE HYDROCHLORIDE [Concomitant]
     Active Substance: FLUOXETINE HYDROCHLORIDE
  6. VENLAFAXINE [Concomitant]
     Active Substance: VENLAFAXINE HYDROCHLORIDE
  7. LORMETAZEPAM [Concomitant]
     Active Substance: LORMETAZEPAM
  8. DARUNAVIR [Concomitant]
     Active Substance: DARUNAVIR

REACTIONS (3)
  - Coma [Recovered/Resolved]
  - Poisoning deliberate [Unknown]
  - Sinus tachycardia [Recovered/Resolved]

NARRATIVE: CASE EVENT DATE: 20220206
